FAERS Safety Report 6469454-3 (Version None)
Quarter: 2009Q4

REPORT INFORMATION
  Report Type: 
  Country: None (occurrence: None)
  Receive Date: 20091203
  Receipt Date: 20091123
  Transmission Date: 20100525
  Serious: Yes (Hospitalization, Other)
  Sender: FDA-Public Use
  Company Number: US-ELI_LILLY_AND_COMPANY-US200911006206

PATIENT
  Age: 32 Year
  Sex: Male

DRUGS (3)
  1. CYMBALTA [Suspect]
     Dosage: UNK, UNKNOWN
     Route: 065
  2. CYMBALTA [Suspect]
     Dosage: UNK, UNKNOWN
     Route: 065
  3. AVONEX [Concomitant]
     Indication: MULTIPLE SCLEROSIS
     Dosage: 30 UG, WEEKLY (1/W)
     Route: 030
     Dates: start: 20081217

REACTIONS (2)
  - DEPRESSION [None]
  - SUICIDE ATTEMPT [None]
